FAERS Safety Report 21263025 (Version 1)
Quarter: 2022Q3

REPORT INFORMATION
  Report Type: Spontaneous
  Country: US (occurrence: None)
  Receive Date: 20220826
  Receipt Date: 20220826
  Transmission Date: 20221026
  Serious: Yes (Life-Threatening, Hospitalization)
  Sender: FDA-Public Use
  Company Number: None

PATIENT
  Age: 54 Year
  Sex: Male
  Weight: 110.22 kg

DRUGS (16)
  1. LAGEVRIO [Suspect]
     Active Substance: MOLNUPIRAVIR
     Indication: COVID-19
     Dosage: FREQUENCY : EVERY 12 HOURS;?
     Route: 048
     Dates: start: 20220807, end: 20220807
  2. ELIQUIS [Concomitant]
     Active Substance: APIXABAN
  3. DIOGOXIN [Concomitant]
  4. METOPROLOL [Concomitant]
     Active Substance: METOPROLOL
  5. CARDIEEM [Concomitant]
  6. AMIORDORNE [Concomitant]
  7. AMBIEN [Concomitant]
     Active Substance: ZOLPIDEM TARTRATE
  8. ZOLOFT [Concomitant]
     Active Substance: SERTRALINE HYDROCHLORIDE
  9. JARDIANCE [Concomitant]
     Active Substance: EMPAGLIFLOZIN
  10. LANTUS [Concomitant]
     Active Substance: INSULIN GLARGINE
  11. ATENOLOL [Concomitant]
     Active Substance: ATENOLOL
  12. LOSARTAN [Concomitant]
     Active Substance: LOSARTAN
  13. LYRICA [Concomitant]
     Active Substance: PREGABALIN
  14. OMEPRAZOLE [Concomitant]
     Active Substance: OMEPRAZOLE
  15. VITAMIN C [Concomitant]
     Active Substance: ASCORBIC ACID
  16. COENZYME Q10 [Concomitant]
     Active Substance: DIETARY SUPPLEMENT\UBIDECARENONE

REACTIONS (2)
  - Headache [None]
  - Atrial fibrillation [None]

NARRATIVE: CASE EVENT DATE: 20220807
